FAERS Safety Report 6366677-9 (Version None)
Quarter: 2009Q3

REPORT INFORMATION
  Report Type: 
  Country: None (occurrence: None)
  Receive Date: 20090921
  Receipt Date: 20090911
  Transmission Date: 20100115
  Serious: Yes (Hospitalization)
  Sender: FDA-Public Use
  Company Number: ES-BAYER-200932081GPV

PATIENT
  Age: 58 Year
  Sex: Male

DRUGS (9)
  1. CAMPATH [Suspect]
     Indication: STEM CELL TRANSPLANT
     Dosage: DAYS -8 TO -4 PRE-TRANSPLANT
     Route: 042
     Dates: start: 20090724, end: 20090728
  2. FLUDARABINE [Suspect]
     Indication: STEM CELL TRANSPLANT
     Dosage: 5 DOSES
     Route: 065
  3. MELPHALAN [Suspect]
     Indication: STEM CELL TRANSPLANT
     Route: 065
  4. CYCLOSPORINE [Suspect]
     Indication: PROPHYLAXIS AGAINST GRAFT VERSUS HOST DISEASE
  5. ALOPURINOL [Concomitant]
     Route: 048
  6. ACFOL [Concomitant]
     Route: 048
  7. OMEPRAZOL [Concomitant]
     Route: 048
  8. SEPTRIN [Concomitant]
     Route: 048
  9. NEORECORMON [Concomitant]
     Route: 058

REACTIONS (5)
  - DYSPNOEA [None]
  - INFECTION [None]
  - PYREXIA [None]
  - RENAL FAILURE ACUTE [None]
  - RESPIRATORY FAILURE [None]
